FAERS Safety Report 12577479 (Version 5)
Quarter: 2016Q3

REPORT INFORMATION
  Report Type: Report from Study
  Country: NZ (occurrence: NZ)
  Receive Date: 20160720
  Receipt Date: 20160816
  Transmission Date: 20161109
  Serious: Yes (Death, Other)
  Sender: FDA-Public Use
  Company Number: NZ-B.I. PHARMACEUTICALS,INC./RIDGEFIELD-2016-BI-32282BI

PATIENT
  Age: 83 Year
  Sex: Male

DRUGS (1)
  1. BI 655075 [Suspect]
     Active Substance: IDARUCIZUMAB
     Indication: PROCOAGULANT THERAPY
     Dosage: 5 G
     Route: 050
     Dates: start: 20160302, end: 20160302

REACTIONS (4)
  - Cholecystitis [Unknown]
  - Pancreatitis necrotising [Unknown]
  - Multiple organ dysfunction syndrome [Fatal]
  - Atrial flutter [Unknown]

NARRATIVE: CASE EVENT DATE: 20160309
